FAERS Safety Report 7521447-0 (Version None)
Quarter: 2011Q2

REPORT INFORMATION
  Report Type: 
  Country: None (occurrence: None)
  Receive Date: 20110603
  Receipt Date: 20110207
  Transmission Date: 20111010
  Serious: Yes (Hospitalization)
  Sender: FDA-Public Use
  Company Number: JP-BAYER-201015853BYL

PATIENT
  Age: 63 Year
  Sex: Male
  Weight: 43 kg

DRUGS (6)
  1. NEXAVAR [Suspect]
     Dosage: 400 MG, QOD
     Dates: start: 20101216, end: 20110110
  2. METHYCOBAL [Concomitant]
     Indication: POSTOPERATIVE CARE
     Dosage: DAILY DOSE 1500 MG
     Route: 048
     Dates: start: 20100602
  3. NEXAVAR [Suspect]
     Indication: HEPATIC NEOPLASM MALIGNANT
     Dosage: DAILY DOSE 400 MG
     Route: 048
     Dates: start: 20101004, end: 20101114
  4. GASMOTIN [Concomitant]
     Indication: ABDOMINAL DISCOMFORT
     Dosage: DAILY DOSE 15 MG
     Route: 048
     Dates: start: 20100602
  5. FLOMAX [Concomitant]
     Indication: TOOTH EXTRACTION
     Dosage: DAILY DOSE 3 DF
     Route: 048
     Dates: start: 20110104
  6. NEXAVAR [Suspect]
     Dosage: 400 MG, QOD
     Route: 048
     Dates: start: 20101115, end: 20101130

REACTIONS (3)
  - DIARRHOEA [None]
  - PALMAR-PLANTAR ERYTHRODYSAESTHESIA SYNDROME [None]
  - LIVER FUNCTION TEST ABNORMAL [None]
